FAERS Safety Report 4457896-7 (Version None)
Quarter: 2004Q3

REPORT INFORMATION
  Report Type: 
  Country: None (occurrence: None)
  Receive Date: 20040917
  Receipt Date: 20040618
  Transmission Date: 20050211
  Serious: Yes (Other)
  Sender: FDA-Public Use
  Company Number: US-JNJFOC-20040605568

PATIENT
  Age: 2 Year
  Sex: Male

DRUGS (1)
  1. TOPAMAX [Suspect]
     Indication: GRAND MAL CONVULSION
     Dosage: 5 MG/KG ; 12 MG/KG  : IN 1 DAY, ORAL
     Route: 048

REACTIONS (1)
  - GRAND MAL CONVULSION [None]
